FAERS Safety Report 21316631 (Version 1)
Quarter: 2022Q3

REPORT INFORMATION
  Report Type: Spontaneous
  Country: US (occurrence: US)
  Receive Date: 20220911
  Receipt Date: 20220911
  Transmission Date: 20221026
  Serious: No
  Sender: FDA-Public Use
  Company Number: US-SA-SAC20220817001696

PATIENT
  Sex: Female
  Weight: 55.79 kg

DRUGS (10)
  1. DUPIXENT [Suspect]
     Active Substance: DUPILUMAB
     Indication: Dermatitis atopic
     Dosage: 300 MG, QOW
     Route: 058
     Dates: start: 20220628
  2. NIACINAMIDE [Concomitant]
     Active Substance: NIACINAMIDE
  3. BREO ELLIPTA [Concomitant]
     Active Substance: FLUTICASONE FUROATE\VILANTEROL TRIFENATATE
  4. VITAMIN C [Concomitant]
     Active Substance: ASCORBIC ACID
  5. PYRIDOXINE [Concomitant]
     Active Substance: PYRIDOXINE
  6. VITAMIN D3 [Concomitant]
     Active Substance: CHOLECALCIFEROL
  7. TAURINE [Concomitant]
     Active Substance: TAURINE
  8. MULTIVITAMINS + IRON [Concomitant]
  9. PREGNENOLONE [Concomitant]
     Active Substance: PREGNENOLONE
  10. ZINC [Concomitant]
     Active Substance: ZINC

REACTIONS (2)
  - Pruritus [Unknown]
  - Drug ineffective [Unknown]
